FAERS Safety Report 8857251 (Version 2)
Quarter: 2012Q4

REPORT INFORMATION
  Report Type: 
  Country: NL (occurrence: NL)
  Receive Date: 20121024
  Receipt Date: 20121129
  Transmission Date: 20130627
  Serious: Yes (Hospitalization, Other)
  Sender: FDA-Public Use
  Company Number: PHHY2012NL095148

PATIENT
  Age: 72 Year
  Sex: Male

DRUGS (1)
  1. SANDOSTATINE LAR [Suspect]
     Indication: NEUROENDOCRINE TUMOUR
     Dosage: 20 mg, once per 4 weeks
     Dates: start: 20090324, end: 20121020

REACTIONS (7)
  - Azotaemia [Unknown]
  - Renal failure acute [Not Recovered/Not Resolved]
  - Renal impairment [Not Recovered/Not Resolved]
  - Malaise [Unknown]
  - Glaucoma [Unknown]
  - Type 2 diabetes mellitus [Unknown]
  - Hypertension [Unknown]
